FAERS Safety Report 9819443 (Version 2)
Quarter: 2014Q1

REPORT INFORMATION
  Report Type: Spontaneous
  Country: US (occurrence: None)
  Receive Date: 20131223
  Receipt Date: 20140228
  Transmission Date: 20141002
  Serious: Yes (Other)
  Sender: FDA-Public Use
  Company Number: 220952

PATIENT
  Age: 56 Year
  Sex: Female

DRUGS (1)
  1. PICATO GEL [Suspect]
     Indication: PHOTODERMATOSIS
     Dosage: ONCE DAILY FOR THREE DAYS.
     Route: 061
     Dates: start: 20130311, end: 20130313

REACTIONS (6)
  - Application site pain [None]
  - Application site vesicles [None]
  - Headache [None]
  - Incorrect dose administered [None]
  - Drug administered at inappropriate site [None]
  - Application site erythema [None]
